FAERS Safety Report 8179713-4 (Version None)
Quarter: 2012Q1

REPORT INFORMATION
  Report Type: 
  Country: None (occurrence: None)
  Receive Date: 20120229
  Receipt Date: 20120213
  Transmission Date: 20120608
  Serious: Yes (Other)
  Sender: FDA-Public Use
  Company Number: 12-094

PATIENT
  Age: 68 Year
  Sex: Male
  Weight: 86 kg

DRUGS (2)
  1. NAPROXEN (ALEVE) [Suspect]
     Indication: SCIATICA
     Dosage: 1DF / PRN/ ORAL
     Route: 048
     Dates: start: 20120207
  2. GLIPIZIDE [Concomitant]

REACTIONS (3)
  - DRUG EFFECT DECREASED [None]
  - FOREIGN BODY [None]
  - CHOKING [None]
